FAERS Safety Report 4498567-0 (Version None)
Quarter: 2004Q4

REPORT INFORMATION
  Report Type: 
  Country: None (occurrence: None)
  Receive Date: 20041108
  Receipt Date: 20041027
  Transmission Date: 20050328
  Serious: Yes (Hospitalization)
  Sender: FDA-Public Use
  Company Number: 235271K04USA

PATIENT
  Age: 43 Year
  Sex: Female

DRUGS (2)
  1. REBIF [Suspect]
     Indication: MULTIPLE SCLEROSIS
     Dosage: 44 MCG, 3 IN 1 WEEKS, SUBCUTANEOUS
     Route: 058
     Dates: start: 20030208
  2. HYDROCODONE (HYDROCODONE) [Concomitant]

REACTIONS (9)
  - ASTHENIA [None]
  - CIRCULATORY COLLAPSE [None]
  - DEHYDRATION [None]
  - DEPRESSION [None]
  - HEART RATE DECREASED [None]
  - HYPOAESTHESIA [None]
  - NASOPHARYNGITIS [None]
  - SINUSITIS [None]
  - VOMITING [None]
